FAERS Safety Report 6059942-6 (Version None)
Quarter: 2009Q1

REPORT INFORMATION
  Report Type: 
  Country: None (occurrence: None)
  Receive Date: 20090130
  Receipt Date: 20090119
  Transmission Date: 20090719
  Serious: Yes (Life-Threatening, Hospitalization, Other)
  Sender: FDA-Public Use
  Company Number: IT-ROCHE-609208

PATIENT
  Age: 1 Month
  Sex: Female

DRUGS (8)
  1. DIAZEPAM [Suspect]
     Route: 065
     Dates: start: 20050901
  2. AMITRIPTYLINE HCL [Suspect]
     Indication: DRUG USE FOR UNKNOWN INDICATION
     Route: 065
     Dates: start: 20040701, end: 20050901
  3. MIDAZOLAM HCL [Suspect]
     Indication: SEDATION
     Route: 065
     Dates: start: 20050901, end: 20050901
  4. FLUNARIZINE [Suspect]
     Dosage: STOPPED AFTER 3 DAYS, BECAUSE OF EXTRAPYRAMIDAL SIDE-EFFECTS
     Route: 065
     Dates: start: 20050101, end: 20050101
  5. EPINEPHRINE [Concomitant]
     Dates: start: 20050901
  6. LIDOCAINE [Concomitant]
     Dates: start: 20050901
  7. SALINE [Concomitant]
     Dates: start: 20050901
  8. PHENOBARBITAL TAB [Concomitant]
     Dates: start: 20040601

REACTIONS (6)
  - CONVULSION [None]
  - EXTRAPYRAMIDAL DISORDER [None]
  - GRAND MAL CONVULSION [None]
  - POISONING DELIBERATE [None]
  - VENTRICULAR FIBRILLATION [None]
  - VENTRICULAR TACHYCARDIA [None]
